FAERS Safety Report 6085642-2 (Version None)
Quarter: 2009Q1

REPORT INFORMATION
  Report Type: 
  Country: None (occurrence: None)
  Receive Date: 20090217
  Receipt Date: 20080803
  Transmission Date: 20090719
  Serious: Yes (Death)
  Sender: FDA-Public Use
  Company Number: MC200600286

PATIENT
  Age: 63 Year
  Sex: Male
  Weight: 79 kg

DRUGS (11)
  1. ANGIOMAX [Suspect]
     Indication: PROPHYLAXIS
     Dosage: 12 ML, BOLUS, INTRAVENOUS ; 28 ML, HR, INTRAVENOUS
     Route: 042
     Dates: start: 20060421, end: 20060421
  2. ANGIOMAX [Suspect]
     Indication: PROPHYLAXIS
     Dosage: 12 ML, BOLUS, INTRAVENOUS ; 28 ML, HR, INTRAVENOUS
     Route: 042
     Dates: start: 20060421, end: 20060421
  3. CLOPIDOGREL [Suspect]
     Dosage: 4 CAPSULES, SINGLE, ORAL
     Route: 048
     Dates: start: 20060421, end: 20060421
  4. CANGRELOR VS PLACEBO(CANGRELOR) INJECTION [Suspect]
     Dosage: 5.8 ML, BOLUS, IV BOLUS; 46.2 ML, UNK, IV
     Route: 040
     Dates: start: 20060421, end: 20060421
  5. INTEGRILIN [Suspect]
     Indication: PROPHYLAXIS
     Dosage: 13 ML, HR, INTRAVENOUS
     Route: 042
     Dates: start: 20060421, end: 20060421
  6. ASPIRIN [Suspect]
     Indication: PROPHYLAXIS
     Dosage: 325 MG, QD, ORAL
     Route: 048
     Dates: start: 20080401
  7. ALTACE [Concomitant]
  8. COREG [Concomitant]
  9. LIPITOR [Concomitant]
  10. HEPARIN [Concomitant]
  11. ASPIRIN [Concomitant]

REACTIONS (1)
  - CEREBRAL HAEMORRHAGE [None]
